FAERS Safety Report 21354326 (Version 1)
Quarter: 2022Q3

REPORT INFORMATION
  Report Type: Spontaneous
  Country: DE (occurrence: DE)
  Receive Date: 20220920
  Receipt Date: 20220920
  Transmission Date: 20221027
  Serious: Yes (Other)
  Sender: FDA-Public Use
  Company Number: DE-Merck Healthcare KGaA-9340232

PATIENT
  Sex: Female

DRUGS (19)
  1. DOXEPIN [Suspect]
     Active Substance: DOXEPIN
     Indication: Product used for unknown indication
     Dosage: 5 MILLIGRAM, QD
     Route: 065
  2. BACLOFEN [Suspect]
     Active Substance: BACLOFEN
     Indication: Product used for unknown indication
     Dosage: 10 MG AT 1:00
     Route: 065
  3. BACLOFEN [Suspect]
     Active Substance: BACLOFEN
     Dosage: 25 MG AT 8:00
     Route: 065
  4. BACLOFEN [Suspect]
     Active Substance: BACLOFEN
     Dosage: 25 MG AT 14.00
     Route: 065
  5. BACLOFEN [Suspect]
     Active Substance: BACLOFEN
     Dosage: 15 MG AT 20.00
     Route: 065
  6. PANTOPRAZOLE [Suspect]
     Active Substance: PANTOPRAZOLE
     Indication: Product used for unknown indication
     Dosage: 20 MILLIGRAM, QD
     Route: 065
  7. GABAPENTIN [Suspect]
     Active Substance: GABAPENTIN
     Indication: Product used for unknown indication
     Dosage: AT 8:00, AT 14.00 AND AT 22.00
     Route: 065
  8. VALSARTAN [Suspect]
     Active Substance: VALSARTAN
     Indication: Product used for unknown indication
     Dosage: 160 MG AT 8:00
     Route: 065
  9. VALSARTAN [Suspect]
     Active Substance: VALSARTAN
     Dosage: 80 MG AT 22:00
     Route: 065
  10. ALLOPURINOL [Suspect]
     Active Substance: ALLOPURINOL
     Indication: Product used for unknown indication
     Dosage: 100 MILLIGRAM, QD
     Route: 065
  11. HERBALS [Suspect]
     Active Substance: HERBALS
     Indication: Product used for unknown indication
     Dosage: AT 8:00, 14.00, 20.00 AND 22.00
     Route: 065
  12. TROSPIUM CHLORIDE [Suspect]
     Active Substance: TROSPIUM CHLORIDE
     Indication: Product used for unknown indication
     Dosage: 45 MILLIGRAM, QD
     Route: 065
  13. GLUCOPHAGE [Suspect]
     Active Substance: METFORMIN HYDROCHLORIDE
     Indication: Type 2 diabetes mellitus
     Dosage: 0.5 DOSAGE FORM, BID
     Route: 065
  14. GLUCOPHAGE [Suspect]
     Active Substance: METFORMIN HYDROCHLORIDE
     Dosage: RESTARTED
     Route: 065
  15. BISACODYL [Suspect]
     Active Substance: BISACODYL
     Indication: Product used for unknown indication
     Dosage: 10 DROPS IN EVE. (8-10 H BEFORE SUPPOSITORIES)
     Route: 065
  16. LEVOTHYROXINE [Suspect]
     Active Substance: LEVOTHYROXINE
     Indication: Product used for unknown indication
     Dosage: 100 (UNSPECIFIED UNIT) AT 7:00
     Route: 065
  17. LEVOTHYROXINE [Suspect]
     Active Substance: LEVOTHYROXINE
     Dosage: 125 UNSPECIFIED UNITS ON MON, TUE, THU, FRI, SAT
     Route: 065
  18. TAPENTADOL [Suspect]
     Active Substance: TAPENTADOL
     Indication: Product used for unknown indication
     Dosage: AT 8:00, AT 14.00 AND AT 22.00
     Route: 065
  19. POTASSIUM TARTRATE\SODIUM BICARBONATE [Suspect]
     Active Substance: POTASSIUM TARTRATE\SODIUM BICARBONATE
     Indication: Product used for unknown indication
     Dosage: 2UNS UNIT, 8 EVERY 2ND DAY BEF. SHOW DRAINAGE
     Route: 065

REACTIONS (14)
  - Autoimmune thyroiditis [Unknown]
  - Polyarthritis [Unknown]
  - Muscle spasticity [Unknown]
  - Urine analysis abnormal [Unknown]
  - Wrong technique in product usage process [Unknown]
  - Illness [Unknown]
  - Sensory disturbance [Unknown]
  - Blood glucose increased [Unknown]
  - Back pain [Not Recovered/Not Resolved]
  - Neuralgia [Not Recovered/Not Resolved]
  - Drug interaction [Unknown]
  - Hypertension [Unknown]
  - Treatment noncompliance [Unknown]
  - Scar [Unknown]
